FAERS Safety Report 10783880 (Version 1)
Quarter: 2015Q1

REPORT INFORMATION
  Report Type: Other
  Country: US (occurrence: US)
  Receive Date: 20150210
  Receipt Date: 20150210
  Transmission Date: 20150721
  Serious: Yes (Death)
  Sender: FDA-Public Use
  Company Number: US-FRI-1000074417

PATIENT
  Age: 21 Year
  Sex: Female

DRUGS (8)
  1. CITALOPRAM [Suspect]
     Active Substance: CITALOPRAM HYDROBROMIDE
  2. AMPHETAMINE [Suspect]
     Active Substance: AMPHETAMINE
  3. COCAINE [Suspect]
     Active Substance: COCAINE
  4. OXYCODONE [Suspect]
     Active Substance: OXYCODONE
  5. HEROIN [Suspect]
     Active Substance: DIACETYLMORPHINE
  6. PROMETHAZINE [Suspect]
     Active Substance: PROMETHAZINE\PROMETHAZINE HYDROCHLORIDE
  7. DEXTROMETHORPHAN [Suspect]
     Active Substance: DEXTROMETHORPHAN
  8. FLUOXETINE [Suspect]
     Active Substance: FLUOXETINE\FLUOXETINE HYDROCHLORIDE

REACTIONS (1)
  - Drug abuse [Fatal]
